FAERS Safety Report 7896133-8 (Version None)
Quarter: 2011Q4

REPORT INFORMATION
  Report Type: 
  Country: None (occurrence: None)
  Receive Date: 20111106
  Receipt Date: 20110906
  Transmission Date: 20120403
  Serious: No
  Sender: FDA-Public Use
  Company Number: US-AMGEN-USASP2011045434

PATIENT
  Age: 55 Year
  Sex: Male
  Weight: 104 kg

DRUGS (10)
  1. DICLOFENAC SODIUM [Concomitant]
     Dosage: 100 MG, UNK
  2. MULTI-VITAMIN [Concomitant]
     Dosage: UNK
  3. VITAMIN D [Concomitant]
     Dosage: 1000 IU, UNK
  4. ENBREL [Suspect]
     Indication: PRODUCT USED FOR UNKNOWN INDICATION
     Dosage: 50 MG, QWK
     Route: 058
  5. VITAMIN E [Concomitant]
     Dosage: 400 IU, UNK
  6. LISINOPRIL [Concomitant]
     Dosage: 10 MG, UNK
  7. VICODIN [Concomitant]
     Dosage: UNK
  8. VITAMIN B COMPLEX CAP [Concomitant]
     Dosage: UNK
  9. CEPHALEXIN [Concomitant]
     Dosage: 500 MG, UNK
  10. FISH OIL [Concomitant]
     Dosage: UNK

REACTIONS (1)
  - RASH [None]
